FAERS Safety Report 25059268 (Version 1)
Quarter: 2025Q1

REPORT INFORMATION
  Report Type: Spontaneous
  Country: US (occurrence: None)
  Receive Date: 20250308
  Receipt Date: 20250308
  Transmission Date: 20250409
  Serious: Yes (Other)
  Sender: FDA-CTU
  Company Number: None

PATIENT
  Age: 61 Year
  Sex: Female
  Weight: 117 kg

DRUGS (8)
  1. OSELTAMIVIR PHOSPHATE [Suspect]
     Active Substance: OSELTAMIVIR PHOSPHATE
     Indication: Influenza A virus test positive
     Dosage: 10 CAPSULES TWICE A DAY ORAL ?
     Route: 048
     Dates: start: 20250305, end: 20250307
  2. venfafaxine [Concomitant]
  3. LEVOTHYROXINE [Concomitant]
     Active Substance: LEVOTHYROXINE
  4. isosorbide monnonitrate [Concomitant]
  5. LACOSAMIDE [Concomitant]
     Active Substance: LACOSAMIDE
  6. camomile tea [Concomitant]
  7. MELATONIN [Concomitant]
     Active Substance: MELATONIN
  8. TYLENOL [Concomitant]
     Active Substance: ACETAMINOPHEN

REACTIONS (5)
  - Anger [None]
  - Tremor [None]
  - Anxiety [None]
  - Insomnia [None]
  - Headache [None]

NARRATIVE: CASE EVENT DATE: 20250307
